FAERS Safety Report 17688087 (Version 1)
Quarter: 2020Q2

REPORT INFORMATION
  Report Type: Spontaneous
  Country: US (occurrence: US)
  Receive Date: 20200417
  Receipt Date: 20200417
  Transmission Date: 20200714
  Serious: No
  Sender: FDA-Public Use
  Company Number: None

PATIENT
  Age: 71 Year
  Sex: Male
  Weight: 87.54 kg

DRUGS (1)
  1. WARFARIN (WARFARIN NA (EXELAN) 2MG TAB [Suspect]
     Active Substance: WARFARIN SODIUM
     Route: 048
     Dates: start: 20100121, end: 20190108

REACTIONS (1)
  - Haemorrhage [None]

NARRATIVE: CASE EVENT DATE: 20190108
